FAERS Safety Report 11109860 (Version 2)
Quarter: 2015Q2

REPORT INFORMATION
  Report Type: Report from Study
  Country: CO (occurrence: CO)
  Receive Date: 20150513
  Receipt Date: 20150529
  Transmission Date: 20150821
  Serious: Yes (Death, Hospitalization, Other)
  Sender: FDA-Public Use
  Company Number: CO-ABBVIE-15K-036-1376390-00

PATIENT
  Age: 78 Year
  Sex: Female
  Weight: 53 kg

DRUGS (2)
  1. HUMIRA [Suspect]
     Active Substance: ADALIMUMAB
     Indication: RHEUMATOID ARTHRITIS
     Route: 058
     Dates: start: 20141216, end: 20150218
  2. ACETAMINOPHEN. [Concomitant]
     Active Substance: ACETAMINOPHEN
     Indication: PRODUCT USED FOR UNKNOWN INDICATION
     Dosage: (SELF MEDICATED)

REACTIONS (16)
  - Malaise [Recovering/Resolving]
  - Pallor [Recovering/Resolving]
  - Headache [Recovering/Resolving]
  - Myalgia [Recovering/Resolving]
  - Arthralgia [Recovering/Resolving]
  - Weight decreased [Unknown]
  - Dental caries [Recovering/Resolving]
  - Haemoptysis [Recovering/Resolving]
  - Mucosal discolouration [Recovering/Resolving]
  - Thrombocytopenia [Recovering/Resolving]
  - Respiratory failure [Unknown]
  - Pleural effusion [Unknown]
  - Cardio-respiratory arrest [Fatal]
  - Dizziness [Recovering/Resolving]
  - Productive cough [Recovering/Resolving]
  - Dyspnoea at rest [Unknown]

NARRATIVE: CASE EVENT DATE: 20150318
